FAERS Safety Report 4777021-2 (Version None)
Quarter: 2005Q3

REPORT INFORMATION
  Report Type: 
  Country: None (occurrence: None)
  Receive Date: 20050914
  Receipt Date: 20040726
  Transmission Date: 20060218
  Serious: Yes (Death)
  Sender: FDA-Public Use
  Company Number: 163-20785-04070577

PATIENT
  Age: 66 Year
  Sex: Male

DRUGS (2)
  1. THALOMID [Suspect]
     Indication: METASTASES TO BONE
     Dosage: 100 MG, QD, ORAL
     Route: 048
     Dates: start: 20040630, end: 20040724
  2. THALOMID [Suspect]
     Indication: RENAL CELL CARCINOMA STAGE UNSPECIFIED
     Dosage: 100 MG, QD, ORAL
     Route: 048
     Dates: start: 20040630, end: 20040724

REACTIONS (1)
  - DISEASE PROGRESSION [None]
